FAERS Safety Report 12526199 (Version 1)
Quarter: 2016Q3

REPORT INFORMATION
  Report Type: Spontaneous
  Country: US (occurrence: None)
  Receive Date: 20160701
  Receipt Date: 20160701
  Transmission Date: 20161109
  Serious: No
  Sender: FDA-Public Use
  Company Number: None

PATIENT
  Sex: Male

DRUGS (1)
  1. LANTANOPROST [Suspect]
     Active Substance: LATANOPROST

REACTIONS (2)
  - Vision blurred [None]
  - Drug ineffective [None]
